FAERS Safety Report 19629839 (Version 4)
Quarter: 2021Q3

REPORT INFORMATION
  Report Type: Report from Study
  Country: US (occurrence: US)
  Receive Date: 20210728
  Receipt Date: 20210909
  Transmission Date: 20211014
  Serious: Yes (Hospitalization)
  Sender: FDA-Public Use
  Company Number: US-BAUSCH-BL-2021-026289

PATIENT
  Age: 46 Year
  Sex: Male

DRUGS (1)
  1. XIFAXAN [Suspect]
     Active Substance: RIFAXIMIN
     Indication: HEPATIC ENCEPHALOPATHY
     Dosage: STARTED 8 YEARS FROM FIRST FOLLOW?UP REPORT; STATED THAT STARTED ABOUT 7 YEARS AGO
     Route: 048
     Dates: start: 2013

REACTIONS (3)
  - Cellulitis [Not Recovered/Not Resolved]
  - Renal failure [Not Recovered/Not Resolved]
  - Respiratory disorder [Not Recovered/Not Resolved]
